FAERS Safety Report 9664505 (Version 2)
Quarter: 2013Q4

REPORT INFORMATION
  Report Type: Spontaneous
  Country: US (occurrence: US)
  Receive Date: 20131101
  Receipt Date: 20131126
  Transmission Date: 20140711
  Serious: No
  Sender: FDA-Public Use
  Company Number: US-009507513-1310USA015344

PATIENT
  Age: 67 Year
  Sex: Female
  Weight: 61.22 kg

DRUGS (2)
  1. OXYTROL FOR WOMEN [Suspect]
     Indication: POLLAKIURIA
     Dosage: UNK UNK, UNKNOWN
     Route: 062
     Dates: start: 20130927, end: 20130930
  2. OXYTROL FOR WOMEN [Suspect]
     Indication: URINARY INCONTINENCE

REACTIONS (4)
  - Condition aggravated [Recovered/Resolved]
  - Urinary incontinence [Recovered/Resolved]
  - Drug ineffective [Unknown]
  - Product quality issue [Unknown]
